FAERS Safety Report 20359590 (Version 3)
Quarter: 2022Q2

REPORT INFORMATION
  Report Type: Report from Study
  Country: IT (occurrence: IT)
  Receive Date: 20220121
  Receipt Date: 20220427
  Transmission Date: 20220720
  Serious: Yes (Hospitalization, Other)
  Sender: FDA-Public Use
  Company Number: IT-NOVARTISPH-PHHY2017IT029813

PATIENT
  Age: 13 Year
  Sex: Male
  Weight: 58.7 kg

DRUGS (17)
  1. GLIVEC [Suspect]
     Active Substance: IMATINIB MESYLATE
     Indication: Philadelphia positive acute lymphocytic leukaemia
     Dosage: 300 OT, UNK
     Route: 048
     Dates: start: 20160229
  2. GLIVEC [Suspect]
     Active Substance: IMATINIB MESYLATE
     Indication: Acute lymphocytic leukaemia
     Dosage: 100 MG, OT
     Route: 048
     Dates: start: 20170203
  3. GLIVEC [Suspect]
     Active Substance: IMATINIB MESYLATE
     Indication: Systemic scleroderma
     Dosage: UNK
     Route: 065
     Dates: end: 20171018
  4. PREDNISONE [Concomitant]
     Active Substance: PREDNISONE
     Indication: Graft versus host disease
     Dosage: 2.5 MG, QOD
     Route: 065
     Dates: start: 20170202
  5. ERYTHROPOIETIN [Concomitant]
     Active Substance: ERYTHROPOIETIN
     Indication: Graft versus host disease
     Dosage: 40000 U, QW
     Route: 065
     Dates: start: 20170219
  6. TACROLIMUS [Concomitant]
     Active Substance: TACROLIMUS
     Indication: Graft versus host disease
     Dosage: 0.5 PLUS 1 MG
     Route: 065
     Dates: start: 20170216
  7. BACTRIM [Concomitant]
     Active Substance: SULFAMETHOXAZOLE\TRIMETHOPRIM
     Indication: Prophylaxis
     Dosage: 800 MG, BIW
     Route: 065
     Dates: start: 20160214
  8. MYFORTIC [Concomitant]
     Active Substance: MYCOPHENOLATE SODIUM
     Indication: Graft versus host disease
     Dosage: 360 MG, BID
     Route: 065
     Dates: start: 201610
  9. ACYCLOVIR [Concomitant]
     Active Substance: ACYCLOVIR
     Indication: Prophylaxis
     Dosage: 400 MG, TID
     Route: 065
     Dates: start: 20160214
  10. DEURSIL [Concomitant]
     Active Substance: URSODIOL
     Indication: Hepatotoxicity
     Dosage: 150 MG, BID
     Route: 065
     Dates: start: 20161001
  11. BECLOMETHASONE DIPROPIONATE [Concomitant]
     Active Substance: BECLOMETHASONE DIPROPIONATE
     Indication: Graft versus host disease in gastrointestinal tract
     Dosage: 5 MG, UNK
     Route: 065
     Dates: start: 201611
  12. FLUCONAZOLE [Concomitant]
     Active Substance: FLUCONAZOLE
     Indication: Prophylaxis
     Dosage: 100 MG, UNK
     Route: 065
     Dates: start: 201611
  13. FLUCONAZOLE [Concomitant]
     Active Substance: FLUCONAZOLE
     Dosage: 100 MG, UNK
     Route: 065
  14. LANSOPRAZOLE [Concomitant]
     Active Substance: LANSOPRAZOLE
     Indication: Gastritis prophylaxis
     Dosage: 30 MG, UNK
     Route: 065
     Dates: start: 20161001
  15. POTASSIUM CHLORIDE [Concomitant]
     Active Substance: POTASSIUM CHLORIDE
     Indication: Hypokalaemia
     Dosage: 2 DF, BID
     Route: 065
  16. MAGNESIUM CHLORIDE [Concomitant]
     Active Substance: MAGNESIUM CHLORIDE
     Indication: Hypomagnesaemia
     Dosage: 2 DF, UNK
     Route: 065
  17. ALLOPURINOL [Concomitant]
     Active Substance: ALLOPURINOL
     Indication: Metabolic syndrome
     Dosage: 300 MG, UNK
     Route: 065
     Dates: start: 201610

REACTIONS (15)
  - Graft versus host disease in gastrointestinal tract [Recovered/Resolved]
  - Weight decreased [Unknown]
  - Vomiting [Recovered/Resolved]
  - Vomiting [Recovered/Resolved]
  - Diarrhoea [Recovered/Resolved]
  - Diarrhoea [Recovered/Resolved]
  - Concomitant disease aggravated [Unknown]
  - Gastroenteritis [Recovered/Resolved]
  - Pyrexia [Recovered/Resolved]
  - Diabetes mellitus [Unknown]
  - Cytopenia [Recovering/Resolving]
  - Acute kidney injury [Recovered/Resolved]
  - Stomatitis [Unknown]
  - C-reactive protein increased [Unknown]
  - Inappropriate schedule of product administration [Unknown]

NARRATIVE: CASE EVENT DATE: 20160908
